FAERS Safety Report 4344911-4 (Version None)
Quarter: 2004Q2

REPORT INFORMATION
  Report Type: 
  Country: None (occurrence: None)
  Receive Date: 20040420
  Receipt Date: 20040408
  Transmission Date: 20050107
  Serious: Yes (Death, Life-Threatening)
  Sender: FDA-Public Use
  Company Number: 2004025162

PATIENT
  Age: 53 Year
  Sex: Female
  Weight: 125 kg

DRUGS (4)
  1. SORTIS (ATORVASTATIN) [Suspect]
     Indication: HYPERCHOLESTEROLAEMIA
     Dosage: 40 MG (DAILY), ORAL
     Route: 048
  2. SALUTEC (HYDROCHLOROTHIAZIDE, RAMIPRIL) [Concomitant]
  3. BISOPROLOL FUMARATE [Concomitant]
  4. AMLODIPINE [Concomitant]

REACTIONS (6)
  - ACUTE RESPIRATORY DISTRESS SYNDROME [None]
  - ARTERIOSCLEROSIS [None]
  - CIRCULATORY COLLAPSE [None]
  - DIALYSIS [None]
  - RENAL FAILURE ACUTE [None]
  - RHABDOMYOLYSIS [None]
